FAERS Safety Report 13415411 (Version 1)
Quarter: 2020Q3

REPORT INFORMATION
  Report Type: Report from Study
  Country: US (occurrence: US)
  Receive Date: 20170406
  Receipt Date: 20170406
  Transmission Date: 20201104
  Serious: Yes (Death, Other)
  Sender: FDA-Public Use
  Company Number: US-SA-2017SA058166

PATIENT

DRUGS (6)
  1. ONARTUZUMAB. [Suspect]
     Active Substance: ONARTUZUMAB
     Indication: COLORECTAL CANCER METASTATIC
     Dosage: DAY 1 OF EACH 14 DAY CYCLE
     Route: 042
  2. LEUCOVORIN. [Suspect]
     Active Substance: LEUCOVORIN
     Indication: COLORECTAL CANCER METASTATIC
     Route: 042
  3. OXALIPLATIN. [Suspect]
     Active Substance: OXALIPLATIN
     Indication: COLORECTAL CANCER METASTATIC
     Dosage: 8?12 CYCLES
     Route: 042
  4. 5?FU [Suspect]
     Active Substance: FLUOROURACIL
     Indication: COLORECTAL CANCER METASTATIC
     Dosage: OVER 46 HOURS
     Route: 042
  5. 5?FU [Suspect]
     Active Substance: FLUOROURACIL
     Indication: COLORECTAL CANCER METASTATIC
     Route: 040
  6. BEVACIZUMAB. [Suspect]
     Active Substance: BEVACIZUMAB
     Indication: COLORECTAL CANCER METASTATIC
     Dosage: EVERY 2 WEEKS
     Route: 042

REACTIONS (21)
  - Hypokalaemia [Unknown]
  - Dehydration [Unknown]
  - Abdominal pain [Unknown]
  - Disease progression [Unknown]
  - Respiratory failure [Unknown]
  - Hyponatraemia [Unknown]
  - Diarrhoea [Unknown]
  - Neutropenia [Unknown]
  - Pulmonary embolism [Unknown]
  - Fatigue [Unknown]
  - White blood cell count decreased [Unknown]
  - Sepsis [Unknown]
  - Neutrophil count decreased [Unknown]
  - Death [Fatal]
  - Cerebrovascular accident [Unknown]
  - Oedema peripheral [Unknown]
  - Deep vein thrombosis [Unknown]
  - Nausea [Unknown]
  - Colorectal cancer metastatic [Unknown]
  - Hyperglycaemia [Unknown]
  - Hypertension [Unknown]
